FAERS Safety Report 7894324-3 (Version None)
Quarter: 2011Q4

REPORT INFORMATION
  Report Type: 
  Country: None (occurrence: None)
  Receive Date: 20111104
  Receipt Date: 20111024
  Transmission Date: 20120403
  Serious: Yes (Hospitalization, Other)
  Sender: FDA-Public Use
  Company Number: BR-MERCK-1110BRA00092

PATIENT
  Age: 49 Year
  Sex: Male
  Weight: 103 kg

DRUGS (8)
  1. ATENOLOL [Concomitant]
     Route: 065
     Dates: start: 20100401
  2. SODIUM NITROPRUSSIDE [Concomitant]
     Route: 065
  3. MINOXIDIL [Concomitant]
     Indication: HYPERTENSION
     Route: 065
  4. AMLODIPINE [Concomitant]
     Route: 065
     Dates: end: 20110401
  5. COZAAR [Suspect]
     Indication: HYPERTENSION
     Route: 065
     Dates: end: 20100401
  6. CLONIDINE [Concomitant]
     Indication: HYPERTENSION
     Route: 065
     Dates: end: 20100401
  7. ATENOLOL [Concomitant]
     Indication: HYPERTENSION
     Route: 065
     Dates: end: 20100401
  8. HYDROCHLOROTHIAZIDE [Concomitant]
     Indication: HYPOTENSION
     Route: 065

REACTIONS (8)
  - HAEMORRHAGIC STROKE [None]
  - HYPERTENSION [None]
  - BLOOD UREA INCREASED [None]
  - WEIGHT DECREASED [None]
  - BLOOD CREATININE INCREASED [None]
  - HYPERTENSIVE CRISIS [None]
  - LEFT VENTRICULAR HYPERTROPHY [None]
  - LEFT VENTRICULAR DYSFUNCTION [None]
